FAERS Safety Report 7229390-1 (Version None)
Quarter: 2011Q1

REPORT INFORMATION
  Report Type: 
  Country: None (occurrence: None)
  Receive Date: 20110117
  Receipt Date: 20110111
  Transmission Date: 20110831
  Serious: Yes (Other)
  Sender: FDA-Public Use
  Company Number: A0905975A

PATIENT
  Age: 20 Year
  Sex: Male

DRUGS (2)
  1. ZOFRAN [Suspect]
     Dosage: 8MG THREE TIMES PER DAY
     Route: 042
  2. PAIN MEDICATIONS [Concomitant]

REACTIONS (2)
  - BLINDNESS [None]
  - RETINAL ISCHAEMIA [None]
